FAERS Safety Report 10096252 (Version 1)
Quarter: 2014Q2

REPORT INFORMATION
  Report Type: Spontaneous
  Country: TR (occurrence: TR)
  Receive Date: 20140422
  Receipt Date: 20140422
  Transmission Date: 20141212
  Serious: Yes (Death, Life-Threatening)
  Sender: FDA-Public Use
  Company Number: TR-TEVA-476427ISR

PATIENT
  Age: 67 Year
  Sex: Male

DRUGS (3)
  1. SERTRALINE [Suspect]
     Indication: MAJOR DEPRESSION
     Dosage: 50 MILLIMOL DAILY;
     Route: 065
  2. SERTRALINE [Interacting]
     Dosage: 100 MILLIGRAM DAILY;
     Route: 065
  3. MIRTAZAPINE [Interacting]
     Indication: MAJOR DEPRESSION
     Dosage: 15 MILLIGRAM DAILY; 15 MG AT BED TIME
     Route: 065

REACTIONS (3)
  - Ventricular tachycardia [Recovered/Resolved]
  - Cardiac arrest [Fatal]
  - Drug interaction [Not Recovered/Not Resolved]
